FAERS Safety Report 7402065-1 (Version None)
Quarter: 2011Q1

REPORT INFORMATION
  Report Type: 
  Country: None (occurrence: None)
  Receive Date: 20110330
  Receipt Date: 20110323
  Transmission Date: 20110831
  Serious: Yes (Life-Threatening, Other)
  Sender: FDA-Public Use
  Company Number: FRA-SPN-2011001

PATIENT
  Age: 21 Year
  Sex: Female

DRUGS (3)
  1. ARGININE [Concomitant]
  2. CITRULLINE [Concomitant]
  3. CARBAGLU -CARGLUMIC ACID -SODIUM BENZOATE -DISPERSIBLE TABLET [Suspect]
     Indication: HYPERAMMONAEMIA
     Dosage: ORAL
     Route: 048
     Dates: start: 20101201

REACTIONS (4)
  - ASPARTATE AMINOTRANSFERASE INCREASED [None]
  - CARDIAC ARREST [None]
  - ALANINE AMINOTRANSFERASE INCREASED [None]
  - GENERAL PHYSICAL HEALTH DETERIORATION [None]
